FAERS Safety Report 13030564 (Version 1)
Quarter: 2016Q4

REPORT INFORMATION
  Report Type: Spontaneous
  Country: US (occurrence: US)
  Receive Date: 20161214
  Receipt Date: 20161214
  Transmission Date: 20170207
  Serious: Yes (Other)
  Sender: FDA-Public Use
  Company Number: None

PATIENT
  Age: 26 Year
  Sex: Female
  Weight: 61.74 kg

DRUGS (1)
  1. MIRENA [Suspect]
     Active Substance: LEVONORGESTREL
     Indication: CONTRACEPTION
     Dosage: 1 INJECTION  VAGINAL
     Route: 067
     Dates: start: 20161013

REACTIONS (6)
  - Gait disturbance [None]
  - Pain [None]
  - Dysstasia [None]
  - Marital problem [None]
  - Depressed mood [None]
  - Hypoaesthesia [None]

NARRATIVE: CASE EVENT DATE: 20161101
